FAERS Safety Report 7113530-9 (Version None)
Quarter: 2010Q4

REPORT INFORMATION
  Report Type: 
  Country: None (occurrence: None)
  Receive Date: 20101119
  Receipt Date: 20101104
  Transmission Date: 20110411
  Serious: Yes (Hospitalization)
  Sender: FDA-Public Use
  Company Number: US-PFIZER INC-2010141353

PATIENT
  Sex: Female
  Weight: 60.317 kg

DRUGS (3)
  1. EFFEXOR XR [Suspect]
     Dosage: 75 MG, 2X/DAY
     Route: 048
     Dates: start: 20030101, end: 20101101
  2. INTERFERON ALFA [Concomitant]
     Dosage: UNK
  3. RIBAVIRIN [Concomitant]
     Dosage: UNK

REACTIONS (2)
  - LIVER FUNCTION TEST ABNORMAL [None]
  - WITHDRAWAL SYNDROME [None]
